FAERS Safety Report 5198131-4 (Version None)
Quarter: 2006Q4

REPORT INFORMATION
  Report Type: 
  Country: None (occurrence: None)
  Receive Date: 20061228
  Receipt Date: 20061228
  Transmission Date: 20070319
  Serious: Yes (Hospitalization)
  Sender: FDA-Public Use
  Company Number: None

PATIENT
  Sex: Male
  Weight: 78.9259 kg

DRUGS (3)
  1. AVASTIN [Suspect]
     Indication: COLON CANCER
     Dosage: 5 MG/KG IV Q 2 WEEKS
     Dates: end: 20061214
  2. OXALIPLATIN [Suspect]
     Dosage: 1500 MG/M2 D-1 THRU 8 PO EVERY 2 WEEKS
     Route: 048
  3. XELODA [Suspect]
     Indication: COLON CANCER
     Dosage: 85 MG/M2 IV Q 2 WEEKS
     Route: 042
     Dates: start: 20061214, end: 20061221

REACTIONS (1)
  - DEHYDRATION [None]
